FAERS Safety Report 7509165-6 (Version None)
Quarter: 2011Q2

REPORT INFORMATION
  Report Type: 
  Country: None (occurrence: None)
  Receive Date: 20110527
  Receipt Date: 20110524
  Transmission Date: 20111010
  Serious: Yes (Other)
  Sender: FDA-Public Use
  Company Number: CHPA2011US07158

PATIENT
  Age: 56 Year
  Sex: Female
  Weight: 81.633 kg

DRUGS (2)
  1. DEXTROMETHORPHAN HYDROBROMIDE [Suspect]
     Indication: COUGH
     Dosage: 1 TSP, UNK
     Route: 048
     Dates: start: 20110503, end: 20110504
  2. DRUG THERAPY NOS [Concomitant]
     Indication: COUGH
     Dosage: UNK, UNK
     Route: 048
     Dates: start: 20110504, end: 20110501

REACTIONS (3)
  - PNEUMONIA [None]
  - DRUG INEFFECTIVE [None]
  - VOMITING [None]
